FAERS Safety Report 9058723 (Version 2)
Quarter: 2013Q1

REPORT INFORMATION
  Report Type: Report from Study
  Country: US (occurrence: US)
  Receive Date: 20130204
  Receipt Date: 20130301
  Transmission Date: 20140127
  Serious: Yes (Hospitalization, Other)
  Sender: FDA-Public Use
  Company Number: US-US-EMD SERONO, INC.-7190918

PATIENT
  Age: 49 None
  Sex: Female
  Weight: 68 kg

DRUGS (1)
  1. REBIF [Suspect]
     Indication: MULTIPLE SCLEROSIS
     Route: 058
     Dates: start: 20060213

REACTIONS (7)
  - Myocardial infarction [Recovered/Resolved]
  - Coronary artery occlusion [Unknown]
  - Breast cancer [Recovering/Resolving]
  - Blood cholesterol increased [Recovering/Resolving]
  - Renal cyst [Unknown]
  - Ovarian cyst [Unknown]
  - Pulmonary mass [Unknown]
